FAERS Safety Report 9156653 (Version 1)
Quarter: 2013Q1

REPORT INFORMATION
  Report Type: Spontaneous
  Country: US (occurrence: None)
  Receive Date: 20130308
  Receipt Date: 20130308
  Transmission Date: 20140127
  Serious: Yes (Hospitalization)
  Sender: FDA-Public Use
  Company Number: None

PATIENT
  Age: 54 Year
  Sex: Female
  Weight: 72.58 kg

DRUGS (5)
  1. AMOXICILLIN + CLAVULANATE POTASSIUM [Suspect]
     Indication: SINUSITIS
     Dosage: 1 TABLET  TWICE DAILY  BY MOUTH?2/5/13 - ONLY 1 DOSE TAKEN
     Route: 048
     Dates: start: 20130205
  2. WELLBUTRIN XL [Concomitant]
  3. PLACQUENIL [Concomitant]
  4. ZYRTEC [Concomitant]
  5. COUMADIN [Concomitant]

REACTIONS (5)
  - Vomiting [None]
  - Hyperhidrosis [None]
  - Asthenia [None]
  - Loss of consciousness [None]
  - Movement disorder [None]
